FAERS Safety Report 20933089 (Version 2)
Quarter: 2022Q3

REPORT INFORMATION
  Report Type: Report from Study
  Country: US (occurrence: US)
  Receive Date: 20220608
  Receipt Date: 20220707
  Transmission Date: 20221027
  Serious: Yes (Hospitalization, Other)
  Sender: FDA-Public Use
  Company Number: US-BRISTOL-MYERS SQUIBB COMPANY-2022-048880

PATIENT
  Age: 88 Year
  Sex: Male
  Weight: 82.55 kg

DRUGS (17)
  1. REVLIMID [Suspect]
     Active Substance: LENALIDOMIDE
     Indication: Plasma cell myeloma
     Route: 048
     Dates: start: 20180928
  2. REVLIMID [Suspect]
     Active Substance: LENALIDOMIDE
     Route: 048
     Dates: start: 20180928
  3. ONDANSETRON [Concomitant]
     Active Substance: ONDANSETRON
  4. AZITHROMYCIN [Concomitant]
     Active Substance: AZITHROMYCIN
  5. DILTIAZEM [Concomitant]
     Active Substance: DILTIAZEM
  6. HYDROXOCOBALAMIN [Concomitant]
     Active Substance: HYDROXOCOBALAMIN
  7. BUDESONIDE\FORMOTEROL\GLYCOPYRRONIUM [Concomitant]
     Active Substance: BUDESONIDE\FORMOTEROL\GLYCOPYRRONIUM
  8. TYLENOL [Concomitant]
     Active Substance: ACETAMINOPHEN
  9. FUROSEMIDE [Concomitant]
     Active Substance: FUROSEMIDE
  10. ANORO ELLIPTA [Concomitant]
     Active Substance: UMECLIDINIUM BROMIDE\VILANTEROL TRIFENATATE
  11. AMITRIPTYLINE [Concomitant]
     Active Substance: AMITRIPTYLINE
  12. ALBUTEROL SULFATE [Concomitant]
     Active Substance: ALBUTEROL SULFATE
  13. POTASSIUM CHLORIDE [Concomitant]
     Active Substance: POTASSIUM CHLORIDE
  14. VITAMIN D3 [Concomitant]
     Active Substance: CHOLECALCIFEROL
  15. LORAZEPAM [Concomitant]
     Active Substance: LORAZEPAM
  16. ELIQUIS [Concomitant]
     Active Substance: APIXABAN
  17. FOLIC ACID\IRON [Concomitant]
     Active Substance: FOLIC ACID\IRON

REACTIONS (8)
  - Dyspnoea [Unknown]
  - Diarrhoea [Unknown]
  - Colon cancer [Unknown]
  - Fall [Unknown]
  - Head injury [Unknown]
  - Hand fracture [Unknown]
  - Product dose omission issue [Unknown]
  - Weight decreased [Unknown]

NARRATIVE: CASE EVENT DATE: 20220501
